FAERS Safety Report 24588985 (Version 1)
Quarter: 2024Q4

REPORT INFORMATION
  Report Type: Spontaneous
  Country: US (occurrence: None)
  Receive Date: 20241106
  Receipt Date: 20241106
  Transmission Date: 20250115
  Serious: Yes (Other)
  Sender: Public
  Company Number: None

PATIENT
  Age: 78 Year
  Sex: Female

DRUGS (1)
  1. CAPECITABINE [Suspect]
     Active Substance: CAPECITABINE

REACTIONS (2)
  - Fatigue [None]
  - Ill-defined disorder [None]

NARRATIVE: CASE EVENT DATE: 20241106
